FAERS Safety Report 8806369 (Version 1)
Quarter: 2012Q4

REPORT INFORMATION
  Report Type: 
  Country: US (occurrence: None)
  Receive Date: 20120919
  Receipt Date: 20120919
  Transmission Date: 20130627
  Serious: No
  Sender: FDA-Public Use
  Company Number: None

PATIENT

DRUGS (2)
  1. METHYLPREDNISOLONE [Suspect]
     Dosage: Dose pack
  2. MICROGESTIN FE 1/20 [Suspect]

REACTIONS (3)
  - Medication error [None]
  - Drug dispensing error [None]
  - Contraindication to medical treatment [None]
